FAERS Safety Report 4952042-5 (Version None)
Quarter: 2006Q1

REPORT INFORMATION
  Report Type: 
  Country: None (occurrence: None)
  Receive Date: 20060322
  Receipt Date: 20060322
  Transmission Date: 20060701
  Serious: Yes (Life-Threatening, Hospitalization, Other)
  Sender: FDA-Public Use
  Company Number: None

PATIENT
  Age: 65 Year
  Sex: Female
  Weight: 54.4316 kg

DRUGS (2)
  1. ISONIAZID [Suspect]
     Indication: EXPOSURE TO COMMUNICABLE DISEASE
     Dosage: 300 MG 1 PER DAY ORAL
     Route: 048
     Dates: start: 20060127, end: 20060213
  2. ISONIAZID [Suspect]
     Indication: EXPOSURE TO COMMUNICABLE DISEASE
     Dosage: 300 MG 1 PER DAY ORAL
     Route: 048
     Dates: start: 20060215

REACTIONS (10)
  - ASTHENIA [None]
  - BLADDER PAIN [None]
  - DISCOMFORT [None]
  - DYSPNOEA [None]
  - ERYTHEMA [None]
  - MALAISE [None]
  - MUSCLE SPASMS [None]
  - PAIN [None]
  - PYREXIA [None]
  - RASH [None]
